FAERS Safety Report 15967118 (Version 1)
Quarter: 2019Q1

REPORT INFORMATION
  Report Type: Spontaneous
  Country: US (occurrence: US)
  Receive Date: 20190215
  Receipt Date: 20190215
  Transmission Date: 20190418
  Serious: Yes (Other)
  Sender: FDA-Public Use
  Company Number: US-SA-2019SA039907

PATIENT
  Age: 42 Year
  Sex: Female
  Weight: 92 kg

DRUGS (6)
  1. TAXOTERE [Suspect]
     Active Substance: DOCETAXEL
     Dosage: 153 MG, 1 MG
     Route: 042
     Dates: start: 20150601, end: 20150601
  2. TAXOTERE [Suspect]
     Active Substance: DOCETAXEL
     Indication: BREAST CANCER FEMALE
     Dosage: 153 MG, 1 MG
     Route: 042
     Dates: start: 20150216, end: 20150216
  3. HYDROCODONE [Concomitant]
     Active Substance: HYDROCODONE
  4. XANAX [Concomitant]
     Active Substance: ALPRAZOLAM
  5. TAMOXIFEN [Concomitant]
     Active Substance: TAMOXIFEN
     Dosage: UNK
     Dates: start: 2015
  6. PARAPLATIN [Concomitant]
     Active Substance: CARBOPLATIN

REACTIONS (2)
  - Psychological trauma [Unknown]
  - Alopecia [Recovering/Resolving]

NARRATIVE: CASE EVENT DATE: 20150409
